FAERS Safety Report 16359928 (Version 1)
Quarter: 2019Q2

REPORT INFORMATION
  Report Type: Spontaneous
  Country: US (occurrence: US)
  Receive Date: 20190528
  Receipt Date: 20190528
  Transmission Date: 20190711
  Serious: Yes (Other)
  Sender: FDA-Public Use
  Company Number: US-PFIZER INC-2019224545

PATIENT
  Age: 62 Year
  Sex: Female

DRUGS (2)
  1. VENLAFAXINE HCL [Suspect]
     Active Substance: VENLAFAXINE HYDROCHLORIDE
     Dosage: UNK
  2. PAROXETINE ACETATE [Suspect]
     Active Substance: PAROXETINE
     Dosage: UNK

REACTIONS (3)
  - Speech disorder [Unknown]
  - Cognitive disorder [Unknown]
  - Brain injury [Unknown]
